FAERS Safety Report 25603227 (Version 1)
Quarter: 2025Q3

REPORT INFORMATION
  Report Type: Spontaneous
  Country: US (occurrence: US)
  Receive Date: 20250724
  Receipt Date: 20250724
  Transmission Date: 20251020
  Serious: Yes (Hospitalization, Other)
  Sender: EDENBRIDGE PHARMACEUTICALS
  Company Number: US-EDENBRIDGE PHARMACEUTICALS, LLC-US-2025EDE000028

PATIENT

DRUGS (2)
  1. LOPERAMIDE [Suspect]
     Active Substance: LOPERAMIDE
     Indication: Drug withdrawal maintenance therapy
     Route: 065
  2. LOPERAMIDE [Suspect]
     Active Substance: LOPERAMIDE
     Dosage: 240 - 280 MG (120 -140 TABLETS) DAILY
     Route: 065

REACTIONS (8)
  - Seizure [Unknown]
  - Depressed level of consciousness [Unknown]
  - Ventricular arrhythmia [Unknown]
  - Electrocardiogram QT prolonged [Recovered/Resolved]
  - Cardiotoxicity [Unknown]
  - Staphylococcal bacteraemia [Unknown]
  - Drug abuse [Unknown]
  - Product use in unapproved indication [Unknown]
